FAERS Safety Report 25442734 (Version 4)
Quarter: 2025Q4

REPORT INFORMATION
  Report Type: Spontaneous
  Country: US (occurrence: US)
  Receive Date: 20250617
  Receipt Date: 20251201
  Transmission Date: 20260117
  Serious: Yes (Other)
  Sender: AMGEN
  Company Number: US-AMGEN-USASP2025117511

PATIENT
  Age: 74 Year
  Sex: Male

DRUGS (1)
  1. TEPEZZA [Suspect]
     Active Substance: TEPROTUMUMAB-TRBW
     Indication: Product used for unknown indication
     Dosage: UNK
     Route: 040
     Dates: start: 20200306, end: 20200730

REACTIONS (5)
  - Colon cancer stage III [Unknown]
  - Transient ischaemic attack [Unknown]
  - Diplopia [Not Recovered/Not Resolved]
  - Dry eye [Recovered/Resolved]
  - Eye pain [Recovered/Resolved]

NARRATIVE: CASE EVENT DATE: 20251124
